FAERS Safety Report 5751944-X (Version None)
Quarter: 2008Q2

REPORT INFORMATION
  Report Type: 
  Country: None (occurrence: None)
  Receive Date: 20080527
  Receipt Date: 20080512
  Transmission Date: 20081010
  Serious: Yes (Other)
  Sender: FDA-Public Use
  Company Number: SPV1-2008-01077

PATIENT
  Age: 51 Year
  Sex: Female
  Weight: 54.4 kg

DRUGS (2)
  1. VYVANSE [Suspect]
     Indication: DEPRESSION
     Dosage: 30 MG, 1X/DAY:QD, ORAL
     Route: 048
     Dates: start: 20070501
  2. VALIUM /00017001/ (DIAZEPAM) [Concomitant]

REACTIONS (3)
  - CATARACT [None]
  - OFF LABEL USE [None]
  - VISUAL DISTURBANCE [None]
